FAERS Safety Report 6687574-5 (Version None)
Quarter: 2010Q2

REPORT INFORMATION
  Report Type: 
  Country: None (occurrence: None)
  Receive Date: 20100416
  Receipt Date: 20100416
  Transmission Date: 20101027
  Serious: Yes (Hospitalization)
  Sender: FDA-Public Use
  Company Number: None

PATIENT
  Sex: Male
  Weight: 43.8 kg

DRUGS (5)
  1. CYTARABINE [Suspect]
     Dosage: 70 MG
     Dates: end: 20090205
  2. DAUNORUBICIN HCL [Suspect]
     Dosage: 172 MG
     Dates: end: 20090226
  3. METHOTREXATE [Suspect]
     Dosage: 30 MG
     Dates: end: 20090305
  4. PREDNISONE [Suspect]
     Dosage: 1400 MG
     Dates: end: 20090306
  5. VINCRISTINE SULFATE [Suspect]
     Dosage: 8 MG
     Dates: end: 20090226

REACTIONS (3)
  - DEPRESSION [None]
  - WEIGHT DECREASED [None]
  - WEIGHT GAIN POOR [None]
